FAERS Safety Report 4569042-X (Version None)
Quarter: 2005Q1

REPORT INFORMATION
  Report Type: 
  Country: None (occurrence: None)
  Receive Date: 20050125
  Receipt Date: 20050125
  Transmission Date: 20050727
  Serious: Yes (Life-Threatening)
  Sender: FDA-Public Use
  Company Number: None

PATIENT
  Age: 74 Year
  Sex: Male

DRUGS (2)
  1. TEQUIN [Suspect]
     Indication: INFECTION
     Dosage: ORAL; 400.0 MILLIGRAM
     Route: 048
     Dates: start: 20041214, end: 20041221
  2. PERCOCET-5 [Concomitant]

REACTIONS (3)
  - CREATININE RENAL CLEARANCE DECREASED [None]
  - DYSPNOEA [None]
  - HYPERGLYCAEMIA [None]
